FAERS Safety Report 5015823-8 (Version None)
Quarter: 2006Q2

REPORT INFORMATION
  Report Type: 
  Country: None (occurrence: None)
  Receive Date: 20060525
  Receipt Date: 20060427
  Transmission Date: 20061013
  Serious: Yes (Death)
  Sender: FDA-Public Use
  Company Number: US200605001761

PATIENT
  Age: 3 Year
  Sex: Female

DRUGS (1)
  1. SOMATROPIN (SOMATROPIN ) [Suspect]
     Indication: PRADER-WILLI SYNDROME
     Dosage: 0.5 MG, DAILY (1/D)

REACTIONS (2)
  - PNEUMONIA [None]
  - TREATMENT NONCOMPLIANCE [None]
